FAERS Safety Report 8379734-2 (Version None)
Quarter: 2012Q1

REPORT INFORMATION
  Report Type: 
  Country: None (occurrence: None)
  Receive Date: 20120323
  Receipt Date: 20110608
  Transmission Date: 20120608
  Serious: Yes (Hospitalization)
  Sender: FDA-Public Use
  Company Number: 163-21880-11040326

PATIENT
  Age: 72 Year
  Sex: Female
  Weight: 73 kg

DRUGS (2)
  1. REVLIMID [Suspect]
  2. REVLIMID [Suspect]
     Indication: MULTIPLE MYELOMA
     Dosage: 10 MG, QOD FOR 21 DAYS ON THEN 7 OFF, PO
     Route: 048
     Dates: start: 20101112

REACTIONS (4)
  - SINUSITIS [None]
  - MALAISE [None]
  - URINARY TRACT INFECTION [None]
  - BACK PAIN [None]
